FAERS Safety Report 23885346 (Version 4)
Quarter: 2025Q1

REPORT INFORMATION
  Report Type: Spontaneous
  Country: IT (occurrence: IT)
  Receive Date: 20240522
  Receipt Date: 20250117
  Transmission Date: 20250408
  Serious: Yes (Hospitalization)
  Sender: BOEHRINGER INGELHEIM
  Company Number: None

PATIENT
  Age: 77 Year
  Sex: Female
  Weight: 57 kg

DRUGS (19)
  1. OFEV [Suspect]
     Active Substance: NINTEDANIB
     Indication: Idiopathic pulmonary fibrosis
     Dates: start: 20240514, end: 20240516
  2. OFEV [Suspect]
     Active Substance: NINTEDANIB
     Dates: start: 20210412, end: 20240507
  3. OFEV [Suspect]
     Active Substance: NINTEDANIB
  4. FOSTER [Concomitant]
     Active Substance: BECLOMETHASONE\FORMOTEROL
     Indication: Asthma
  5. FOSTER [Concomitant]
     Active Substance: BECLOMETHASONE\FORMOTEROL
     Dosage: IN THE MORNING
  6. RIOPAN [Concomitant]
     Indication: Hyperchlorhydria
  7. DAPAGLIFLOZIN [Concomitant]
     Active Substance: DAPAGLIFLOZIN
     Indication: Type 2 diabetes mellitus
  8. ASPIRIN [Concomitant]
     Active Substance: ASPIRIN
     Indication: Thrombosis prophylaxis
  9. ASPIRIN [Concomitant]
     Active Substance: ASPIRIN
     Indication: Atrial fibrillation
  10. LASIX [Concomitant]
     Active Substance: FUROSEMIDE
     Indication: Cardiac failure
  11. BIMATOPROST\TIMOLOL [Concomitant]
     Active Substance: BIMATOPROST\TIMOLOL
     Indication: Glaucoma
     Dosage: 1 DROP IN EACH EYE, IN THE EVENING, OF GANFORT (0.3+0.5MG/ML BIMATOPROST + TIMOLOL)
  12. ZOLOFT [Concomitant]
     Active Substance: SERTRALINE HYDROCHLORIDE
     Indication: Depression
  13. ALLOPURINOL [Concomitant]
     Active Substance: ALLOPURINOL
     Indication: Gout
  14. LUVION [Concomitant]
     Indication: Cardiac failure
  15. ATORVASTATIN [Concomitant]
     Active Substance: ATORVASTATIN
     Indication: Hypercholesterolaemia
  16. OMEPRAZOLE [Concomitant]
     Active Substance: OMEPRAZOLE
     Indication: Dyspepsia
  17. DEPONIT [Concomitant]
     Active Substance: NITROGLYCERIN
     Indication: Angina pectoris
  18. ISOSORBIDE DINITRATE [Concomitant]
     Active Substance: ISOSORBIDE DINITRATE
     Indication: Coronary artery insufficiency
  19. ASPIRIN [Concomitant]
     Active Substance: ASPIRIN
     Indication: Atrial fibrillation

REACTIONS (3)
  - Diarrhoea haemorrhagic [Recovered/Resolved]
  - Abdominal pain [Recovered/Resolved]
  - Loss of consciousness [Recovered/Resolved]

NARRATIVE: CASE EVENT DATE: 20240507
